FAERS Safety Report 25734311 (Version 1)
Quarter: 2025Q3

REPORT INFORMATION
  Report Type: Spontaneous
  Country: US (occurrence: None)
  Receive Date: 20250827
  Receipt Date: 20250827
  Transmission Date: 20251020
  Serious: No
  Sender: FDA-CTU
  Company Number: None

PATIENT
  Age: 77 Year
  Sex: Male

DRUGS (11)
  1. LENALIDOMIDE [Suspect]
     Active Substance: LENALIDOMIDE
     Indication: Plasma cell myeloma
     Route: 048
     Dates: start: 20250805
  2. ACYCLOVIR [Concomitant]
     Active Substance: ACYCLOVIR
  3. ANORO ELLIPT AER [Concomitant]
  4. ASPIRIN [Concomitant]
     Active Substance: ASPIRIN
  5. BIOTIN [Concomitant]
     Active Substance: BIOTIN
  6. VITAMINS [Concomitant]
     Active Substance: VITAMINS
  7. CETIRIZINE HCL [Concomitant]
     Active Substance: CETIRIZINE HYDROCHLORIDE
  8. EFFEXOR [Concomitant]
     Active Substance: VENLAFAXINE HYDROCHLORIDE
  9. ELIQUIS [Concomitant]
     Active Substance: APIXABAN
  10. FUROSEMIDE [Concomitant]
     Active Substance: FUROSEMIDE
  11. KRILL OIL [Concomitant]
     Active Substance: DIETARY SUPPLEMENT\KRILL OIL

REACTIONS (2)
  - Pneumonia [None]
  - White blood cell count decreased [None]

NARRATIVE: CASE EVENT DATE: 20250801
